FAERS Safety Report 9394426 (Version 3)
Quarter: 2013Q3

REPORT INFORMATION
  Report Type: Spontaneous
  Country: US (occurrence: US)
  Receive Date: 20130711
  Receipt Date: 20130812
  Transmission Date: 20140515
  Serious: No
  Sender: FDA-Public Use
  Company Number: US-PFIZER INC-2013202029

PATIENT
  Age: 60 Year
  Sex: Male
  Weight: 81.6 kg

DRUGS (1)
  1. CHANTIX [Suspect]
     Indication: SMOKING CESSATION THERAPY
     Dosage: 1 MG, UNK
     Dates: start: 2011

REACTIONS (4)
  - Drug ineffective [Unknown]
  - Food poisoning [Unknown]
  - Urticaria [Unknown]
  - Blood cholesterol abnormal [Unknown]
